FAERS Safety Report 4673575-5 (Version None)
Quarter: 2005Q2

REPORT INFORMATION
  Report Type: 
  Country: None (occurrence: None)
  Receive Date: 20050523
  Receipt Date: 20050516
  Transmission Date: 20051028
  Serious: Yes (Other)
  Sender: FDA-Public Use
  Company Number: 200511058BCC

PATIENT
  Age: 83 Year
  Sex: Female
  Weight: 88.4514 kg

DRUGS (7)
  1. REGIMEN BAYER (ACETYLSALICYLIC ACID) [Suspect]
     Indication: MYOCARDIAL INFARCTION
     Dosage: 81 MG, QD, ORAL
     Route: 048
     Dates: start: 20020901
  2. REGIMEN BAYER (ACETYLSALICYLIC ACID) [Suspect]
     Indication: PROPHYLAXIS
     Dosage: 81 MG, QD, ORAL
     Route: 048
     Dates: start: 20020901
  3. ONE A DAY WEIGHT SMART VITAMIN [Suspect]
     Indication: VITAMIN SUPPLEMENTATION
     Dosage: QD
     Dates: start: 20040101
  4. LISINOPRIL [Concomitant]
  5. CALTRATE [Concomitant]
  6. IRON PILL [Concomitant]
  7. NITROGLYCERIN TABLETS [Concomitant]

REACTIONS (4)
  - LOSS OF CONSCIOUSNESS [None]
  - MYOCARDIAL INFARCTION [None]
  - WEIGHT DECREASED [None]
  - WEIGHT INCREASED [None]
